FAERS Safety Report 7776306-5 (Version None)
Quarter: 2011Q3

REPORT INFORMATION
  Report Type: 
  Country: None (occurrence: None)
  Receive Date: 20110916
  Receipt Date: 20110909
  Transmission Date: 20111222
  Serious: Yes (Death, Life-Threatening, Hospitalization)
  Sender: FDA-Public Use
  Company Number: 2011029020

PATIENT
  Age: 77 Year
  Sex: Female

DRUGS (10)
  1. HYDROXYZINE (HDYROXYZINE) [Concomitant]
  2. ACETAMINOPHEN [Concomitant]
  3. EDUCTYL (EDUCTYL) [Concomitant]
  4. PRIVIGEN [Suspect]
     Indication: POLYMYOSITIS
     Dosage: SEE IMAGE
     Route: 042
     Dates: start: 20110617
  5. PRIVIGEN [Suspect]
     Indication: POLYMYOSITIS
     Dosage: SEE IMAGE
     Route: 042
     Dates: start: 20110609
  6. ATARAX [Concomitant]
  7. AMITRIPTYLINE HCL [Concomitant]
  8. CETIRIZINE [Concomitant]
  9. ZOPICLONE (ZOPICLONE) [Concomitant]
  10. METHYLPREDNISOLONE [Concomitant]

REACTIONS (7)
  - HYPOXIC-ISCHAEMIC ENCEPHALOPATHY [None]
  - ASTHENIA [None]
  - HYPOVENTILATION [None]
  - HYPOTENSION [None]
  - BRADYCARDIA [None]
  - PERICARDITIS [None]
  - PLEURAL EFFUSION [None]
